FAERS Safety Report 16567315 (Version 1)
Quarter: 2019Q3

REPORT INFORMATION
  Report Type: Spontaneous
  Country: GB (occurrence: GB)
  Receive Date: 20190712
  Receipt Date: 20190712
  Transmission Date: 20191004
  Serious: Yes (Death, Other)
  Sender: FDA-Public Use
  Company Number: GB-ASTRAZENECA-2019SF00257

PATIENT
  Age: 56 Year
  Sex: Male

DRUGS (3)
  1. ASPIRIN. [Concomitant]
     Active Substance: ASPIRIN
  2. BRILIQUE [Suspect]
     Active Substance: TICAGRELOR
     Indication: ACUTE MYOCARDIAL INFARCTION
     Dosage: 180.0MG UNKNOWN
     Route: 048
  3. MORPHINE SULFATE. [Concomitant]
     Active Substance: MORPHINE SULFATE
     Indication: ANALGESIC THERAPY
     Route: 042

REACTIONS (9)
  - Pulmonary embolism [Unknown]
  - Cardiac tamponade [Unknown]
  - Bradycardia [Unknown]
  - Chest pain [Unknown]
  - Vascular stent thrombosis [Fatal]
  - Coronary artery dissection [Unknown]
  - Hypotension [Unknown]
  - Acute myocardial infarction [Unknown]
  - Pulseless electrical activity [Unknown]
